FAERS Safety Report 5964403-6 (Version None)
Quarter: 2008Q4

REPORT INFORMATION
  Report Type: 
  Country: None (occurrence: None)
  Receive Date: 20081124
  Receipt Date: 20081114
  Transmission Date: 20090506
  Serious: Yes (Other)
  Sender: FDA-Public Use
  Company Number: GB-PFIZER INC-2008097034

PATIENT
  Age: 27 Year
  Sex: Female

DRUGS (2)
  1. CHAMPIX [Suspect]
     Route: 048
  2. CLEXANE [Concomitant]

REACTIONS (3)
  - DEPRESSED MOOD [None]
  - DEPRESSION SUICIDAL [None]
  - FEELING ABNORMAL [None]
